FAERS Safety Report 9491407 (Version 2)
Quarter: 2013Q1

REPORT INFORMATION
  Report Type: Not Available
  Country: US (occurrence: US)
  Receive Date: 20120619
  Receipt Date: 20120619
  Transmission Date: 20140127
  Serious: Yes (Hospitalization)
  Sender: FDA-Public Use
  Company Number: US-LUNDBECK-DKLU1060906

PATIENT
  Age: 8 None
  Sex: Male
  Weight: 35 kg

DRUGS (6)
  1. CLOBAZAM [Suspect]
     Indication: LENNOX-GASTAUT SYNDROME
     Route: 048
     Dates: start: 20060718, end: 20071207
  2. CLOBAZAM [Suspect]
     Route: 048
  3. TOPIRAMATE [Concomitant]
     Indication: CONVULSION
     Dates: start: 20071207
  4. ATIVAN [Concomitant]
     Indication: CONVULSION
     Route: 050
     Dates: start: 20071207, end: 20071209
  5. FOSPHENYTOIN [Concomitant]
     Indication: CONVULSION
     Route: 050
     Dates: start: 20071207, end: 20071207
  6. HEPARIN [Concomitant]
     Indication: HEPARIN NEUTRALISATION THERAPY
     Dates: start: 20071207, end: 20071209

REACTIONS (1)
  - Convulsion [Recovered/Resolved]
